FAERS Safety Report 19898256 (Version 1)
Quarter: 2021Q3

REPORT INFORMATION
  Report Type: Spontaneous
  Country: FR (occurrence: FR)
  Receive Date: 20210930
  Receipt Date: 20210930
  Transmission Date: 20211014
  Serious: Yes (Hospitalization, Other)
  Sender: FDA-Public Use
  Company Number: FR-AUROBINDO-AUR-APL-2021-040431

PATIENT
  Age: 16 Year
  Sex: Female
  Weight: 38.8 kg

DRUGS (33)
  1. CHLORPROMAZINE. [Concomitant]
     Active Substance: CHLORPROMAZINE
     Indication: PANIC ATTACK
     Dosage: 60 MILLIGRAM, ONCE A DAY
     Route: 048
     Dates: start: 20210427
  2. CYAMEMAZINE [Concomitant]
     Active Substance: CYAMEMAZINE
     Dosage: 15 MILLIGRAM
     Route: 048
     Dates: start: 20210401, end: 20210401
  3. FLUOXETINE [Concomitant]
     Active Substance: FLUOXETINE HYDROCHLORIDE
     Dosage: 60 MILLIGRAM, ONCE A DAY
     Route: 048
     Dates: start: 20210428
  4. ZOLPIDEM [Concomitant]
     Active Substance: ZOLPIDEM TARTRATE
     Indication: SLEEP DISORDER
     Dosage: 10 MILLIGRAM
     Route: 048
     Dates: start: 20210331
  5. CYAMEMAZINE [Concomitant]
     Active Substance: CYAMEMAZINE
     Indication: PANIC ATTACK
     Dosage: 75 MILLIGRAM, ONCE A DAY
     Route: 048
     Dates: start: 20210525
  6. CYAMEMAZINE [Concomitant]
     Active Substance: CYAMEMAZINE
     Dosage: 60 MILLIGRAM, ONCE A DAY
     Route: 048
     Dates: start: 20210402, end: 20210404
  7. ALPRAZOLAM. [Concomitant]
     Active Substance: ALPRAZOLAM
     Indication: PANIC ATTACK
     Dosage: 0.25 MILLIGRAM
     Route: 048
     Dates: start: 20210423
  8. IMODIUM [Suspect]
     Active Substance: LOPERAMIDE HYDROCHLORIDE
     Indication: PRODUCT USED FOR UNKNOWN INDICATION
     Dosage: UNK, 12 IMODIUM
     Route: 065
  9. FLUOXETINE [Concomitant]
     Active Substance: FLUOXETINE HYDROCHLORIDE
     Indication: MAJOR DEPRESSION
     Dosage: 40 MILLIGRAM, ONCE A DAY
     Route: 048
     Dates: start: 20210416, end: 20210427
  10. ANETHOLE TRITHIONE [Concomitant]
     Active Substance: ANETHOLTRITHION
     Indication: PROPHYLAXIS
     Dosage: 75 MILLIGRAM, ONCE A DAY
     Route: 048
     Dates: start: 20210408
  11. FERROUS FUMARATE [Concomitant]
     Active Substance: FERROUS FUMARATE
     Indication: ANAEMIA
     Dosage: 66 MILLIGRAM
     Route: 048
     Dates: start: 20210520
  12. DIAZEPAM. [Concomitant]
     Active Substance: DIAZEPAM
     Indication: PANIC ATTACK
     Dosage: 15 MILLIGRAM
     Route: 048
     Dates: start: 20210403, end: 20210409
  13. PARACETAMOL [Suspect]
     Active Substance: ACETAMINOPHEN
     Indication: PRODUCT USED FOR UNKNOWN INDICATION
     Dosage: 8 GRAM
     Route: 065
  14. SULFARLEM [Suspect]
     Active Substance: ANETHOLTRITHION
     Indication: PRODUCT USED FOR UNKNOWN INDICATION
     Dosage: UNK, 60
     Route: 065
  15. ACTISKENAN [Concomitant]
     Active Substance: MORPHINE SULFATE
     Dosage: 10 MILLIGRAM, ONCE A DAY
     Route: 048
     Dates: start: 20210427
  16. CYAMEMAZINE [Concomitant]
     Active Substance: CYAMEMAZINE
     Dosage: 45 MILLIGRAM, ONCE A DAY
     Route: 048
     Dates: start: 20210407
  17. SENNOSIDE [Concomitant]
     Active Substance: SENNOSIDES
     Indication: CONSTIPATION PROPHYLAXIS
     Dosage: 2.4 GRAM
     Route: 048
     Dates: start: 20210427
  18. FLUOXETINE [Concomitant]
     Active Substance: FLUOXETINE HYDROCHLORIDE
     Indication: MAJOR DEPRESSION
     Dosage: 20 DOSAGE FORM, DAILY
     Route: 048
     Dates: start: 20210402, end: 20210415
  19. PRAZEPAM [Concomitant]
     Active Substance: PRAZEPAM
     Dosage: 10 MILLIGRAM, ONCE A DAY
     Route: 048
     Dates: start: 20210428, end: 20210513
  20. FUMAFER [Suspect]
     Active Substance: FERROUS FUMARATE
     Indication: PRODUCT USED FOR UNKNOWN INDICATION
     Dosage: UNK, 25
     Route: 065
  21. CYAMEMAZINE [Concomitant]
     Active Substance: CYAMEMAZINE
     Dosage: 60 MILLIGRAM, ONCE A DAY
     Route: 048
     Dates: start: 20210406, end: 20210406
  22. N?ACETYLCYSTEINE [Concomitant]
     Active Substance: ACETYLCYSTEINE
     Indication: PRODUCT USED FOR UNKNOWN INDICATION
     Dosage: 11640 MILLIGRAM
     Route: 042
     Dates: start: 20210904, end: 20210905
  23. MITRAZAC [Concomitant]
     Indication: PANIC ATTACK
     Dosage: 15 MILLIGRAM
     Route: 048
     Dates: start: 20210608
  24. TROPATEPINE [Concomitant]
     Active Substance: TROPATEPINE
     Indication: PROPHYLAXIS
     Dosage: 10 MILLIGRAM
     Route: 048
     Dates: start: 20210427
  25. ACTISKENAN [Concomitant]
     Active Substance: MORPHINE SULFATE
     Indication: MAJOR DEPRESSION
     Dosage: 5 MILLIGRAM
     Route: 048
     Dates: start: 20210427, end: 20210430
  26. CYAMEMAZINE [Concomitant]
     Active Substance: CYAMEMAZINE
     Dosage: 45 MILLIGRAM, ONCE A DAY
     Route: 048
     Dates: start: 20210405, end: 20210405
  27. MACROGOL [Concomitant]
     Active Substance: POLYETHYLENE GLYCOLS
     Indication: CONSTIPATION PROPHYLAXIS
     Dosage: 52.48 GRAM, ONCE A DAY
     Route: 048
     Dates: start: 20210427
  28. PRAZEPAM [Concomitant]
     Active Substance: PRAZEPAM
     Dosage: 7.5 MILLIGRAM
     Route: 048
     Dates: start: 20210514, end: 20210519
  29. PRAZEPAM [Concomitant]
     Active Substance: PRAZEPAM
     Dosage: 5 MILLIGRAM
     Route: 048
     Dates: start: 20210520
  30. SPASMEX (PHLORGLUCINOL) [Suspect]
     Active Substance: PHLOROGLUCINOL
     Indication: PRODUCT USED FOR UNKNOWN INDICATION
     Dosage: UNK, 10
     Route: 065
  31. CYAMEMAZINE [Concomitant]
     Active Substance: CYAMEMAZINE
     Indication: PANIC ATTACK
     Dosage: 30 MILLIGRAM, ONCE A DAY
     Route: 048
     Dates: start: 20210331, end: 20210331
  32. PRAZEPAM [Concomitant]
     Active Substance: PRAZEPAM
     Indication: PRODUCT USED FOR UNKNOWN INDICATION
     Dosage: 40 MILLIGRAM, ONCE A DAY
     Route: 048
     Dates: start: 20210409, end: 20210427
  33. IBUPROFEN. [Suspect]
     Active Substance: IBUPROFEN
     Indication: PRODUCT USED FOR UNKNOWN INDICATION
     Dosage: 23 DOSAGE FORM
     Route: 065

REACTIONS (1)
  - Suicide attempt [Recovering/Resolving]

NARRATIVE: CASE EVENT DATE: 20210903
